FAERS Safety Report 12775748 (Version 3)
Quarter: 2016Q3

REPORT INFORMATION
  Report Type: Spontaneous
  Country: US (occurrence: US)
  Receive Date: 20160923
  Receipt Date: 20160923
  Transmission Date: 20161109
  Serious: Yes (Hospitalization)
  Sender: FDA-Public Use
  Company Number: US-PFIZER INC-3270142

PATIENT
  Age: 50 Year
  Sex: Female
  Weight: 105 kg

DRUGS (5)
  1. FARLETUZUMAB [Suspect]
     Active Substance: FARLETUZUMAB
     Indication: OVARIAN CANCER RECURRENT
     Dosage: 5 MG/KG/ PLACEBO WEEKLY
     Route: 041
     Dates: start: 20160112, end: 2016
  2. FARLETUZUMAB [Suspect]
     Active Substance: FARLETUZUMAB
     Dosage: 10 MG/KG/ PLACEBO AS A LOADING DOSE ONCE WEEKLY FOR 2 WEEKS OF TREATMENT
     Route: 041
     Dates: start: 20160112
  3. DOXIL [Suspect]
     Active Substance: DOXORUBICIN HYDROCHLORIDE
     Indication: OVARIAN CANCER RECURRENT
     Dosage: 30 MG/M2, FOR 6 CYCLES, FREQ: 1 WEEK; INTERVAL: 4
     Route: 041
     Dates: start: 20160112
  4. CARBOPLATIN. [Suspect]
     Active Substance: CARBOPLATIN
     Indication: OVARIAN CANCER RECURRENT
     Dosage: DOSING PER AUC 5, ONCE EVERY 4WEEKS FOR 6 CYCLES
     Route: 041
     Dates: start: 20160112
  5. PLACEBO [Suspect]
     Active Substance: UNSPECIFIED INGREDIENT
     Dosage: UNK

REACTIONS (7)
  - Lipase increased [Unknown]
  - Blood glucose increased [Unknown]
  - Weight decreased [Unknown]
  - Dehydration [None]
  - Vomiting [Recovered/Resolved]
  - Blood urea nitrogen/creatinine ratio increased [None]
  - Nausea [Recovered/Resolved]

NARRATIVE: CASE EVENT DATE: 20160317
